FAERS Safety Report 8325741-5 (Version None)
Quarter: 2012Q2

REPORT INFORMATION
  Report Type: 
  Country: None (occurrence: None)
  Receive Date: 20120501
  Receipt Date: 20120424
  Transmission Date: 20120825
  Serious: No
  Sender: FDA-Public Use
  Company Number: US-BIOGENIDEC-2010BI010890

PATIENT
  Sex: Male

DRUGS (1)
  1. TYSABRI [Suspect]
     Indication: MULTIPLE SCLEROSIS
     Route: 042
     Dates: start: 20080930

REACTIONS (10)
  - CHEST PAIN [None]
  - DYSPHEMIA [None]
  - BURNING SENSATION [None]
  - LOSS OF CONTROL OF LEGS [None]
  - FLUSHING [None]
  - BLOOD PRESSURE INCREASED [None]
  - FATIGUE [None]
  - HYPERSENSITIVITY [None]
  - BACK PAIN [None]
  - PNEUMONIA [None]
